FAERS Safety Report 5068127-1 (Version None)
Quarter: 2006Q3

REPORT INFORMATION
  Report Type: 
  Country: None (occurrence: None)
  Receive Date: 20060717
  Receipt Date: 20060206
  Transmission Date: 20061208
  Serious: Yes (Other)
  Sender: FDA-Public Use
  Company Number: 2006000311

PATIENT
  Age: 75 Year
  Sex: Female

DRUGS (2)
  1. TARCEVA [Suspect]
     Indication: NON-SMALL CELL LUNG CANCER
     Dosage: SEE IMAGE
     Route: 048
     Dates: start: 20051201, end: 20060110
  2. TARCEVA [Suspect]
     Indication: NON-SMALL CELL LUNG CANCER
     Dosage: SEE IMAGE
     Route: 048
     Dates: start: 20060111, end: 20060123

REACTIONS (3)
  - COUGH [None]
  - DYSPNOEA [None]
  - LUNG INFILTRATION [None]
